FAERS Safety Report 15250255 (Version 1)
Quarter: 2018Q3

REPORT INFORMATION
  Report Type: Spontaneous
  Country: US (occurrence: US)
  Receive Date: 20180716
  Receipt Date: 20180716
  Transmission Date: 20181010
  Serious: Yes (Disabling)
  Sender: FDA-Public Use
  Company Number: None

PATIENT
  Age: 65 Year
  Sex: Female
  Weight: 46.35 kg

DRUGS (6)
  1. MAGNESIUM [Concomitant]
     Active Substance: MAGNESIUM
  2. KELP [Concomitant]
     Active Substance: KELP
  3. LEG AND BACK PAIN RELIEF (HOMEOPATHIC) [Suspect]
     Active Substance: HOMEOPATHICS
     Indication: SCIATICA
     Route: 060
     Dates: start: 20180714, end: 20180714
  4. MULTI VITAMIN [Concomitant]
     Active Substance: VITAMINS
  5. OLIVE LEAF EXTRACT [Concomitant]
  6. EXTRA VITAMIN B [Concomitant]

REACTIONS (3)
  - Abdominal discomfort [None]
  - Product formulation issue [None]
  - Diarrhoea [None]

NARRATIVE: CASE EVENT DATE: 20180715
